FAERS Safety Report 13835789 (Version 1)
Quarter: 2017Q3

REPORT INFORMATION
  Report Type: Spontaneous
  Country: DE (occurrence: DE)
  Receive Date: 20170804
  Receipt Date: 20170804
  Transmission Date: 20171127
  Serious: Yes (Life-Threatening, Hospitalization, Other)
  Sender: FDA-Public Use
  Company Number: DE-UCBSA-2017030204

PATIENT
  Age: 68 Year
  Sex: Female
  Weight: 49 kg

DRUGS (2)
  1. VIMPAT [Suspect]
     Active Substance: LACOSAMIDE
     Indication: CEREBROVASCULAR ACCIDENT PROPHYLAXIS
     Dosage: 300 MG, 2X/DAY (BID) VIA NG TUBE
     Dates: start: 20170411, end: 2017
  2. VIMPAT [Suspect]
     Active Substance: LACOSAMIDE
     Indication: OFF LABEL USE
     Dosage: 400 MG/DAY VIA NG TUBE
     Dates: start: 2017, end: 20170710

REACTIONS (14)
  - Vomiting [Recovered/Resolved]
  - Poisoning [Recovered/Resolved]
  - Aphasia [Recovered/Resolved]
  - Hallucination [Recovered/Resolved]
  - Myoclonus [Recovered/Resolved]
  - Dysphagia [Recovered/Resolved]
  - Nystagmus [Recovered/Resolved]
  - Drug eruption [Recovered/Resolved]
  - Tremor [Recovered/Resolved]
  - Off label use [Unknown]
  - Disturbance in attention [Recovered/Resolved]
  - Electroencephalogram abnormal [Recovered/Resolved]
  - Encephalopathy [Recovered/Resolved]
  - Persecutory delusion [Recovered/Resolved]

NARRATIVE: CASE EVENT DATE: 201704
